FAERS Safety Report 5358790-X (Version None)
Quarter: 2007Q2

REPORT INFORMATION
  Report Type: 
  Country: None (occurrence: None)
  Receive Date: 20070530
  Receipt Date: 20070207
  Transmission Date: 20071010
  Serious: No
  Sender: FDA-Public Use
  Company Number: 2007PV029734

PATIENT
  Age: 60 Year
  Sex: Male
  Weight: 122.9248 kg

DRUGS (3)
  1. BYETTA [Suspect]
     Indication: DIABETES MELLITUS NON-INSULIN-DEPENDENT
     Dosage: 10; 5 MCG; BID; SC
     Route: 058
     Dates: start: 20061101, end: 20061101
  2. BYETTA [Suspect]
     Indication: DIABETES MELLITUS NON-INSULIN-DEPENDENT
     Dosage: 10; 5 MCG; BID; SC
     Route: 058
     Dates: start: 20070101
  3. ACTOS [Concomitant]

REACTIONS (1)
  - WEIGHT DECREASED [None]
